FAERS Safety Report 24005329 (Version 1)
Quarter: 2024Q2

REPORT INFORMATION
  Report Type: Report from Study
  Country: CA (occurrence: CA)
  Receive Date: 20240624
  Receipt Date: 20240624
  Transmission Date: 20240716
  Serious: Yes (Other)
  Sender: FDA-Public Use
  Company Number: CA-ABBVIE-5811649

PATIENT
  Age: 36 Year
  Sex: Female

DRUGS (1)
  1. RINVOQ [Suspect]
     Active Substance: UPADACITINIB
     Indication: Ankylosing spondylitis
     Route: 048
     Dates: start: 202401, end: 2024

REACTIONS (3)
  - Urinary tract infection [Unknown]
  - Unevaluable event [Unknown]
  - Urinary tract discomfort [Unknown]

NARRATIVE: CASE EVENT DATE: 20240101
